FAERS Safety Report 7929171-7 (Version None)
Quarter: 2011Q4

REPORT INFORMATION
  Report Type: 
  Country: None (occurrence: None)
  Receive Date: 20111120
  Receipt Date: 20111107
  Transmission Date: 20120403
  Serious: Yes (Other)
  Sender: FDA-Public Use
  Company Number: TW-ELI_LILLY_AND_COMPANY-TW201110001330

PATIENT
  Age: 61 Year
  Sex: Female

DRUGS (2)
  1. FORTEO [Suspect]
     Dosage: UNK
  2. FORTEO [Suspect]
     Dosage: UNK
     Dates: start: 20110816, end: 20110901

REACTIONS (6)
  - VOMITING [None]
  - NAUSEA [None]
  - ADVERSE EVENT [None]
  - DIZZINESS [None]
  - INTENTIONAL DRUG MISUSE [None]
  - INTERVERTEBRAL DISC PROTRUSION [None]
